FAERS Safety Report 11137174 (Version 1)
Quarter: 2015Q2

REPORT INFORMATION
  Report Type: Spontaneous
  Country: CH (occurrence: CH)
  Receive Date: 20150526
  Receipt Date: 20150526
  Transmission Date: 20150821
  Serious: Yes (Hospitalization)
  Sender: FDA-Public Use
  Company Number: CH-BAYER-2015-252843

PATIENT
  Age: 51 Year
  Sex: Male

DRUGS (8)
  1. TOPAMAX [Concomitant]
     Active Substance: TOPIRAMATE
     Dosage: UNK
  2. SORTIS [Concomitant]
     Active Substance: ATORVASTATIN
     Dosage: UNK
  3. DAFALGAN [Concomitant]
     Active Substance: ACETAMINOPHEN
     Dosage: UNK
  4. ASPIRIN CARDIO [Suspect]
     Active Substance: ASPIRIN
     Dosage: 100 MG, QD
     Route: 048
     Dates: end: 201408
  5. ALFUZOSIN [Concomitant]
     Active Substance: ALFUZOSIN
     Dosage: UNK
  6. PANTOZOL [Concomitant]
     Active Substance: PANTOPRAZOLE SODIUM
     Dosage: UNK
  7. VOLTAREN [DICLOFENAC] [Suspect]
     Active Substance: DICLOFENAC SODIUM
     Dosage: 75 MG, TID
     Route: 048
     Dates: end: 201408
  8. ATACAND [Suspect]
     Active Substance: CANDESARTAN CILEXETIL
     Dosage: 8 MG, QD
     Route: 048
     Dates: end: 201408

REACTIONS (1)
  - Prerenal failure [Recovered/Resolved]

NARRATIVE: CASE EVENT DATE: 201408
